FAERS Safety Report 16702781 (Version 1)
Quarter: 2019Q3

REPORT INFORMATION
  Report Type: Spontaneous
  Country: US (occurrence: US)
  Receive Date: 20190813
  Receipt Date: 20190813
  Transmission Date: 20191004
  Serious: Yes (Other)
  Sender: FDA-Public Use
  Company Number: None

PATIENT
  Age: 66 Year
  Sex: Female

DRUGS (1)
  1. PROGESTERONE CAPSULES [Suspect]
     Active Substance: PROGESTERONE
     Indication: INSOMNIA
     Dosage: ?          QUANTITY:100 CAPSULE(S);?
     Route: 048
     Dates: start: 20190612, end: 20190813

REACTIONS (4)
  - Sluggishness [None]
  - Abnormal sleep-related event [None]
  - Incorrect dose administered [None]
  - Headache [None]

NARRATIVE: CASE EVENT DATE: 20190809
